FAERS Safety Report 20207819 (Version 2)
Quarter: 2022Q1

REPORT INFORMATION
  Report Type: Spontaneous
  Country: JP (occurrence: JP)
  Receive Date: 20211220
  Receipt Date: 20220117
  Transmission Date: 20220423
  Serious: Yes (Hospitalization)
  Sender: FDA-Public Use
  Company Number: JP-JNJFOC-20211238993

PATIENT
  Age: 65 Year
  Sex: Male

DRUGS (9)
  1. UPTRAVI [Suspect]
     Active Substance: SELEXIPAG
     Indication: Pulmonary hypertension
     Route: 048
     Dates: start: 20210930, end: 202110
  2. UPTRAVI [Suspect]
     Active Substance: SELEXIPAG
     Route: 048
     Dates: start: 20211029, end: 20211109
  3. UPTRAVI [Suspect]
     Active Substance: SELEXIPAG
     Route: 048
     Dates: start: 2021, end: 2021
  4. UPTRAVI [Suspect]
     Active Substance: SELEXIPAG
     Route: 048
     Dates: start: 20211206, end: 20211206
  5. UPTRAVI [Suspect]
     Active Substance: SELEXIPAG
     Route: 048
     Dates: start: 202112
  6. ADEMPAS [Suspect]
     Active Substance: RIOCIGUAT
     Indication: Pulmonary hypertension
     Route: 048
     Dates: start: 20210930, end: 20211109
  7. ADEMPAS [Suspect]
     Active Substance: RIOCIGUAT
     Route: 048
     Dates: start: 2021, end: 202112
  8. ADEMPAS [Suspect]
     Active Substance: RIOCIGUAT
     Route: 048
     Dates: start: 20211206
  9. NIFEDIPINE [Suspect]
     Active Substance: NIFEDIPINE
     Indication: Product used for unknown indication
     Route: 048

REACTIONS (3)
  - Pneumonia [Recovered/Resolved]
  - Hypotension [Recovered/Resolved]
  - Pruritus [Recovered/Resolved]

NARRATIVE: CASE EVENT DATE: 20211109
